FAERS Safety Report 12472124 (Version 1)
Quarter: 2016Q2

REPORT INFORMATION
  Report Type: Report from Study
  Country: US (occurrence: US)
  Receive Date: 20160616
  Receipt Date: 20160616
  Transmission Date: 20160815
  Serious: Yes (Hospitalization)
  Sender: FDA-Public Use
  Company Number: US-BIOGEN-2016BI00251383

PATIENT
  Age: 49 Year
  Sex: Female

DRUGS (1)
  1. TECFIDERA [Suspect]
     Active Substance: DIMETHYL FUMARATE
     Indication: MULTIPLE SCLEROSIS
     Route: 048
     Dates: start: 2015

REACTIONS (6)
  - Clavicle fracture [Unknown]
  - Cerebral haemorrhage [Unknown]
  - Photopsia [Unknown]
  - Syncope [Unknown]
  - Seizure [Unknown]
  - Disorientation [Unknown]

NARRATIVE: CASE EVENT DATE: 20160605
